FAERS Safety Report 7397540-2 (Version None)
Quarter: 2011Q2

REPORT INFORMATION
  Report Type: 
  Country: None (occurrence: None)
  Receive Date: 20110401
  Receipt Date: 20110401
  Transmission Date: 20111010
  Serious: Yes (Other)
  Sender: FDA-Public Use
  Company Number: None

PATIENT
  Age: 56 Year
  Sex: Female
  Weight: 54.4316 kg

DRUGS (2)
  1. CLONAZEPAM [Suspect]
     Indication: ANXIETY
     Dosage: 2 MG 1/DAY
     Dates: start: 20090301
  2. LAMICTAL [Suspect]
     Indication: CONVULSION
     Dosage: 175 MG DAILY
     Dates: start: 20090301

REACTIONS (1)
  - CONVULSION [None]
